FAERS Safety Report 8302875-2 (Version None)
Quarter: 2012Q2

REPORT INFORMATION
  Report Type: 
  Country: None (occurrence: None)
  Receive Date: 20120420
  Receipt Date: 20120410
  Transmission Date: 20120825
  Serious: Yes (Life-Threatening)
  Sender: FDA-Public Use
  Company Number: US-ROCHE-1058484

PATIENT
  Sex: Female
  Weight: 51 kg

DRUGS (8)
  1. MAXAIR [Concomitant]
     Indication: ASTHMA
     Dates: start: 20090130
  2. OMEPRAZOLE [Concomitant]
     Indication: GASTROOESOPHAGEAL REFLUX DISEASE
     Route: 048
     Dates: start: 20090429
  3. XOLAIR [Suspect]
     Indication: ASTHMA
     Route: 058
     Dates: start: 20060419, end: 20120216
  4. SINGULAIR [Concomitant]
     Indication: ASTHMA
     Dosage: AT NIGHT
     Route: 048
     Dates: start: 20080101
  5. AVAPRO [Concomitant]
     Indication: HYPERTENSION
     Route: 048
     Dates: start: 20100501
  6. LEVOTHROID [Concomitant]
     Indication: THYROID DISORDER
     Route: 048
  7. ADVAIR DISKUS 100/50 [Concomitant]
     Indication: ASTHMA
     Dosage: INHALED
     Dates: start: 20100214
  8. TRAMADOL HCL [Concomitant]
     Indication: PAIN
     Dosage: AS NEEDED
     Route: 048
     Dates: start: 20120308

REACTIONS (4)
  - TONSIL CANCER [None]
  - TONSILLAR ATROPHY [None]
  - TONSILLAR DISORDER [None]
  - LYMPHATIC DISORDER [None]
